FAERS Safety Report 26138971 (Version 2)
Quarter: 2025Q4

REPORT INFORMATION
  Report Type: Spontaneous
  Country: EU (occurrence: EU)
  Receive Date: 20251210
  Receipt Date: 20251231
  Transmission Date: 20260118
  Serious: No
  Sender: AMGEN
  Company Number: EU-BEH-2025220436

PATIENT
  Age: 63 Year
  Sex: Male

DRUGS (2)
  1. TAVNEOS [Suspect]
     Active Substance: AVACOPAN
     Indication: Granulomatosis with polyangiitis
     Dosage: 30 MG, BID
     Route: 048
     Dates: start: 20250710, end: 20251016
  2. RITUXIMAB [Concomitant]
     Active Substance: RITUXIMAB
     Dosage: UNK
     Dates: start: 202507

REACTIONS (3)
  - Oedema [Not Recovered/Not Resolved]
  - Proteinuria [Recovered/Resolved]
  - Weight increased [Unknown]

NARRATIVE: CASE EVENT DATE: 20250701
